FAERS Safety Report 9550196 (Version 3)
Quarter: 2013Q4

REPORT INFORMATION
  Report Type: Spontaneous
  Country: US (occurrence: US)
  Receive Date: 20130924
  Receipt Date: 20131101
  Transmission Date: 20140711
  Serious: Yes (Life-Threatening)
  Sender: FDA-Public Use
  Company Number: PHEH2013US019894

PATIENT
  Age: 21 Year
  Sex: Male
  Weight: 127 kg

DRUGS (3)
  1. GILENYA [Suspect]
     Indication: MULTIPLE SCLEROSIS
     Dosage: 0.5 MG, QD
     Route: 048
     Dates: start: 20130919, end: 20130919
  2. MULTI-VIT [Concomitant]
     Dosage: 1 DF, QD
     Route: 048
  3. VITAMIN D [Concomitant]
     Dosage: 1000 IU, UNK

REACTIONS (6)
  - Atrioventricular dissociation [Recovered/Resolved]
  - Heart rate decreased [Not Recovered/Not Resolved]
  - Atrioventricular block complete [Recovered/Resolved]
  - Sinus bradycardia [Not Recovered/Not Resolved]
  - Blood pressure fluctuation [Unknown]
  - Muscle spasms [Unknown]
